FAERS Safety Report 5794889-1 (Version None)
Quarter: 2008Q2

REPORT INFORMATION
  Report Type: 
  Country: None (occurrence: None)
  Receive Date: 20080627
  Receipt Date: 20080627
  Transmission Date: 20081010
  Serious: Yes (Life-Threatening, Other)
  Sender: FDA-Public Use
  Company Number: None

PATIENT
  Age: 42 Year
  Sex: Female
  Weight: 65.7716 kg

DRUGS (8)
  1. PROVENTIL-HFA [Suspect]
     Indication: ASTHMA
     Dosage: 2 PUFFS 2XDAILY INHAL
     Route: 055
     Dates: start: 20080301, end: 20080609
  2. THEOPHYLLINE [Concomitant]
  3. FEXOFENADINE [Concomitant]
  4. PSEUDOPHEDERINE [Concomitant]
  5. GUQIFENESIN [Concomitant]
  6. MONOLUKAST SODIUM [Concomitant]
  7. AVOCET [Concomitant]
  8. ZITHROMAX [Concomitant]

REACTIONS (1)
  - ANAPHYLACTIC REACTION [None]
